FAERS Safety Report 15639372 (Version 13)
Quarter: 2020Q4

REPORT INFORMATION
  Report Type: Report from Study
  Country: GB (occurrence: GB)
  Receive Date: 20181120
  Receipt Date: 20201218
  Transmission Date: 20210113
  Serious: Yes (Hospitalization, Other)
  Sender: FDA-Public Use
  Company Number: GB-PFIZER INC-2018396716

PATIENT
  Age: 56 Year
  Sex: Female

DRUGS (65)
  1. LETROZOLE. [Suspect]
     Active Substance: LETROZOLE
     Indication: BREAST CANCER METASTATIC
     Dosage: 2.5 MG, 1X/DAY
     Route: 048
     Dates: start: 201507, end: 20170427
  2. GABAPENTIN. [Concomitant]
     Active Substance: GABAPENTIN
     Dosage: 300 MG, 3X/DAY
     Route: 048
     Dates: start: 20151231
  3. CLARITHROMYCIN. [Concomitant]
     Active Substance: CLARITHROMYCIN
     Dosage: 500 MG
     Route: 042
     Dates: start: 20190611, end: 20190611
  4. METRONIDAZOLE. [Concomitant]
     Active Substance: METRONIDAZOLE
     Indication: PYREXIA
  5. LANSOPRAZOLE. [Concomitant]
     Active Substance: LANSOPRAZOLE
     Dosage: 15 MG, 1X/DAY
     Route: 048
     Dates: start: 2001
  6. INHIXA [Concomitant]
     Active Substance: ENOXAPARIN SODIUM
     Indication: THROMBOSIS PROPHYLAXIS
     Dosage: 40 MG, 1X/DAY
     Route: 058
     Dates: start: 20190610, end: 20190623
  7. DERMOL [BENZALKONIUM CHLORIDE;CHLORHEXIDINE HYDROCHLORIDE;ISOPROPYL MY [Concomitant]
     Dosage: UNK, 4X/DAY
     Route: 061
  8. BLOOD [Concomitant]
     Active Substance: WHOLE BLOOD
     Dosage: 3 UNITS
     Route: 042
     Dates: start: 20200501, end: 20200501
  9. FUROSEMIDE. [Concomitant]
     Active Substance: FUROSEMIDE
     Indication: OEDEMA
     Dosage: 80 MG, 1X/DAY
     Route: 048
     Dates: start: 20151112, end: 20151118
  10. FUROSEMIDE. [Concomitant]
     Active Substance: FUROSEMIDE
     Dosage: 20 MG, 1X/DAY
     Route: 048
     Dates: start: 20191113, end: 20191116
  11. METRONIDAZOLE. [Concomitant]
     Active Substance: METRONIDAZOLE
     Indication: OSTEOMYELITIS
     Dosage: UNK
     Route: 048
     Dates: start: 20170701, end: 20170708
  12. METRONIDAZOLE. [Concomitant]
     Active Substance: METRONIDAZOLE
     Indication: CELLULITIS
     Dosage: 400 MG, 4X/DAY
     Route: 048
     Dates: start: 20180915, end: 20180921
  13. NAPROXEN. [Concomitant]
     Active Substance: NAPROXEN
     Dosage: 250 MG, 2X/DAY
     Route: 048
  14. LEVOTHYROXINE. [Concomitant]
     Active Substance: LEVOTHYROXINE
     Indication: HYPOTHYROIDISM
     Route: 048
     Dates: start: 20200311
  15. VITAMIN D3 [Concomitant]
     Active Substance: CHOLECALCIFEROL
     Indication: BONE DISORDER
     Dosage: 400 IU, 1X/DAY
     Route: 048
     Dates: start: 20150827
  16. PARACETAMOL [Concomitant]
     Active Substance: ACETAMINOPHEN
     Dosage: ONGOING
     Route: 048
     Dates: start: 201504
  17. DIAZEPAM. [Concomitant]
     Active Substance: DIAZEPAM
     Indication: MUSCULOSKELETAL STIFFNESS
     Dosage: 2 MG, 3X/DAY
     Route: 048
     Dates: start: 20180105
  18. PROMETHAZINE HYDROCHLORIDE. [Concomitant]
     Active Substance: PROMETHAZINE HYDROCHLORIDE
     Dosage: 25 MG
     Route: 048
  19. PEPTAC [CALCIUM CARBONATE;SODIUM ALGINATE;SODIUM BICARBONATE] [Concomitant]
     Dosage: 15 ML,
     Route: 048
  20. PIPERACILLIN/TAZOBACTAM [Concomitant]
     Active Substance: PIPERACILLIN SODIUM\TAZOBACTAM SODIUM
  21. BLOOD [Concomitant]
     Active Substance: WHOLE BLOOD
     Dosage: 2 UNITS
     Route: 042
     Dates: start: 20181022, end: 20181022
  22. BLOOD [Concomitant]
     Active Substance: WHOLE BLOOD
     Dosage: 2 UNITS
     Route: 042
     Dates: start: 20190611, end: 20190611
  23. BLOOD [Concomitant]
     Active Substance: WHOLE BLOOD
     Dosage: 3 UNITS
     Route: 042
     Dates: start: 20200613, end: 20200613
  24. TINZAPARIN [Concomitant]
     Active Substance: TINZAPARIN
     Indication: DEEP VEIN THROMBOSIS
     Dosage: 22000 IU
     Route: 058
     Dates: start: 20200624, end: 20200624
  25. TRASTUZUMAB. [Suspect]
     Active Substance: TRASTUZUMAB
     Indication: BREAST CANCER METASTATIC
     Dosage: 600 MG, MONTHLY
     Route: 058
     Dates: start: 20150716, end: 20171222
  26. ZOMORPH [Concomitant]
     Active Substance: MORPHINE SULFATE
     Indication: METASTATIC NEOPLASM
  27. DENOSUMAB [Concomitant]
     Active Substance: DENOSUMAB
     Indication: METASTASES TO BONE
     Dosage: 120 MG, UNK
     Route: 058
     Dates: start: 20170604, end: 20170613
  28. MORPHINE SULFATE. [Concomitant]
     Active Substance: MORPHINE SULFATE
     Indication: BACK PAIN
     Dosage: 30 MG, 1X/DAY
     Route: 048
     Dates: start: 201504
  29. MORPHINE SULFATE. [Concomitant]
     Active Substance: MORPHINE SULFATE
     Dosage: 10 MG, 4X/DAY
     Route: 048
     Dates: start: 20171224
  30. GABAPENTIN. [Concomitant]
     Active Substance: GABAPENTIN
     Dosage: 1.2 G, 3X/DAY
     Route: 048
  31. CITALOPRAM [Concomitant]
     Active Substance: CITALOPRAM HYDROBROMIDE
     Dosage: 40 MG, 1X/DAY
     Route: 048
     Dates: start: 2005
  32. LANSOPRAZOLE. [Concomitant]
     Active Substance: LANSOPRAZOLE
     Dosage: 30 MG, 1X/DAY
     Route: 048
  33. DIAZEPAM. [Concomitant]
     Active Substance: DIAZEPAM
     Indication: BACK PAIN
  34. NAPROXEN. [Concomitant]
     Active Substance: NAPROXEN
     Dosage: FREQ:.5 D;ONGOING
     Route: 048
  35. BLOOD [Concomitant]
     Active Substance: WHOLE BLOOD
     Dosage: 2 UNITS
     Route: 042
     Dates: start: 20200718, end: 20200718
  36. COTRIMOXAZOLE [Concomitant]
     Active Substance: SULFAMETHOXAZOLE\TRIMETHOPRIM
     Indication: SEPSIS
     Dosage: UNK, 2X/DAY
     Route: 048
     Dates: start: 20181015, end: 20181022
  37. FUROSEMIDE. [Concomitant]
     Active Substance: FUROSEMIDE
     Dosage: 40 MG, 1X/DAY
     Route: 042
     Dates: start: 20200622, end: 20200623
  38. ZOMORPH [Concomitant]
     Active Substance: MORPHINE SULFATE
     Indication: PAIN
     Dosage: 30 MG, 2X/DAY
     Route: 048
     Dates: start: 201611
  39. LISINOPRIL. [Concomitant]
     Active Substance: LISINOPRIL
     Indication: EJECTION FRACTION DECREASED
     Dosage: 2.5 MG, 3X/DAYONGOING
     Route: 048
     Dates: start: 20161110
  40. METRONIDAZOLE. [Concomitant]
     Active Substance: METRONIDAZOLE
     Indication: OSTEOMYELITIS
  41. COTRIMOXAZOLE [Concomitant]
     Active Substance: SULFAMETHOXAZOLE\TRIMETHOPRIM
     Dosage: 960 MG, 2X/DAY
     Route: 042
     Dates: start: 20190611, end: 20190611
  42. MAGNESIUM ASPARTATE [Concomitant]
     Active Substance: MAGNESIUM ASPARTATE
     Indication: HYPOMAGNESAEMIA
     Dosage: 6.5 G, 2X/DAY
     Route: 048
     Dates: start: 20191111
  43. FUROSEMIDE. [Concomitant]
     Active Substance: FUROSEMIDE
     Dosage: 40 MG, 1X/DAY
     Route: 048
     Dates: start: 20191117
  44. MORPHINE SULFATE. [Concomitant]
     Active Substance: MORPHINE SULFATE
     Dosage: 40 MG, UNK
     Route: 048
     Dates: start: 20150516, end: 201611
  45. CLARITHROMYCIN. [Concomitant]
     Active Substance: CLARITHROMYCIN
     Indication: PYREXIA
     Dosage: 500 MG, 2X/DAY
     Route: 048
     Dates: start: 20190415
  46. CLINDAMYCIN. [Concomitant]
     Active Substance: CLINDAMYCIN
     Indication: STAPHYLOCOCCAL INFECTION
     Dosage: 1.2 G, 4X/DAY
     Route: 042
     Dates: start: 20190611, end: 20190621
  47. DENOSUMAB [Concomitant]
     Active Substance: DENOSUMAB
     Indication: METASTASES TO BONE
     Dosage: 120 MG, UNK
     Route: 058
     Dates: start: 20180118
  48. AMOXICILLIN. [Concomitant]
     Active Substance: AMOXICILLIN
     Dosage: 1000 MG, 3X/DAY
     Route: 048
     Dates: start: 20170701, end: 20170706
  49. LISINOPRIL. [Concomitant]
     Active Substance: LISINOPRIL
     Indication: EJECTION FRACTION DECREASED
  50. DOXYCLINE [DOXYCYCLINE] [Concomitant]
     Active Substance: DOXYCYCLINE
     Indication: PYREXIA
     Dosage: 100 MG, 1X/DAY
     Route: 048
     Dates: start: 20170112, end: 20170118
  51. DOXYCLINE [DOXYCYCLINE] [Concomitant]
     Active Substance: DOXYCYCLINE
     Indication: LOWER RESPIRATORY TRACT INFECTION
     Dosage: 100 MG, 2X/DAY
     Route: 048
     Dates: start: 20180814, end: 20180814
  52. HYOSCINE BUTYLBROMIDE [Concomitant]
     Active Substance: BUTYLSCOPOLAMINE BROMIDE
     Indication: NAUSEA
     Dosage: 10 MG, 3X/DAY
     Route: 048
     Dates: start: 20181222
  53. LOPERAMIDE [Concomitant]
     Active Substance: LOPERAMIDE
     Indication: DIARRHOEA
     Dosage: UNK
     Dates: start: 201804, end: 2019
  54. BLOOD [Concomitant]
     Active Substance: WHOLE BLOOD
     Dosage: 2 UNITS
     Route: 042
     Dates: start: 20160317, end: 20160317
  55. FUROSEMIDE. [Concomitant]
     Active Substance: FUROSEMIDE
     Dosage: 40 MG, 2X/DAY
     Route: 042
     Dates: start: 20200626
  56. TINZAPARIN [Concomitant]
     Active Substance: TINZAPARIN
     Dosage: 20000 IU
     Route: 058
     Dates: start: 20190928
  57. EXEMESTANE. [Suspect]
     Active Substance: EXEMESTANE
     Indication: BREAST CANCER METASTATIC
     Dosage: 25 MG, 1X/DAY
     Route: 048
     Dates: start: 20170428, end: 20180110
  58. TRASTUZUMAB EMTANSINE [Suspect]
     Active Substance: ADO-TRASTUZUMAB EMTANSINE
     Indication: HER2 POSITIVE BREAST CANCER
     Dosage: 420 MG, EVERY 4 WEEKS
     Route: 042
     Dates: start: 20180118
  59. MORPHINE SULFATE. [Concomitant]
     Active Substance: MORPHINE SULFATE
     Dosage: 60 MG, UNK
     Route: 048
     Dates: start: 201504, end: 20160516
  60. AMOXICILLIN. [Concomitant]
     Active Substance: AMOXICILLIN
     Indication: LOWER RESPIRATORY TRACT INFECTION
     Dosage: 1000 MG, 3X/DAY
     Route: 048
     Dates: start: 20180701, end: 20180711
  61. CLARITHROMYCIN. [Concomitant]
     Active Substance: CLARITHROMYCIN
     Indication: LOWER RESPIRATORY TRACT INFECTION
     Dosage: 500 MG, 2X/DAY
     Route: 048
     Dates: start: 20180701, end: 20180711
  62. CYCLIZINE [Concomitant]
     Active Substance: CYCLIZINE
     Dosage: 50 MG, 3X/DAY
     Route: 048
     Dates: start: 201507
  63. BLOOD [Concomitant]
     Active Substance: WHOLE BLOOD
     Indication: ANAEMIA
     Dosage: 2 UNITS
     Route: 042
     Dates: start: 20191112, end: 20191112
  64. FERROUS SULFATE. [Concomitant]
     Active Substance: FERROUS SULFATE
     Indication: ANAEMIA
     Dosage: 200 MG, 1X/DAY
     Route: 048
     Dates: start: 20200804
  65. FUROSEMIDE. [Concomitant]
     Active Substance: FUROSEMIDE
     Dosage: 40 MG, 2X/DAY
     Route: 042
     Dates: start: 20200623, end: 20200626

REACTIONS (8)
  - Cellulitis [Recovered/Resolved]
  - Pneumonia [Recovered/Resolved]
  - Infection [Not Recovered/Not Resolved]
  - Constipation [Recovered/Resolved]
  - Cellulitis [Recovered/Resolved]
  - Pyrexia [Not Recovered/Not Resolved]
  - Haemoptysis [Recovered/Resolved]
  - Pyrexia [Not Recovered/Not Resolved]

NARRATIVE: CASE EVENT DATE: 20180601
